FAERS Safety Report 16397298 (Version 1)
Quarter: 2019Q2

REPORT INFORMATION
  Report Type: Spontaneous
  Country: US (occurrence: US)
  Receive Date: 20190606
  Receipt Date: 20190606
  Transmission Date: 20190711
  Serious: Yes (Other)
  Sender: FDA-Public Use
  Company Number: US-AMGEN-USASP2019086779

PATIENT

DRUGS (9)
  1. CARFILZOMIB [Suspect]
     Active Substance: CARFILZOMIB
     Dosage: UNK, DAYS 1, 2, 15 AND 16 POST CYCLE 9
     Route: 065
  2. VALACYCLOVIR [Concomitant]
     Active Substance: VALACYCLOVIR HYDROCHLORIDE
     Dosage: UNK
  3. CARFILZOMIB [Suspect]
     Active Substance: CARFILZOMIB
     Dosage: UNK, DAYS 8, 9, 15, 16 OF FIRST CYCLE, THEN 1, 2, 8, 9, 15 AND 16 THEREAFTER
     Route: 065
  4. DEXAMETHASONE. [Suspect]
     Active Substance: DEXAMETHASONE
     Indication: PLASMA CELL MYELOMA
     Dosage: 20 MILLIGRAM, (ON DAYS 1, 2, 8, 9, 15, 16, 22 AND 23
     Route: 065
  5. SELINEXOR [Suspect]
     Active Substance: SELINEXOR
     Indication: PLASMA CELL MYELOMA
     Dosage: UNK, DAYS 1, 3, 8, 10, 15 AND 17 (TWICE WEEKLY)
     Route: 065
  6. CARFILZOMIB [Suspect]
     Active Substance: CARFILZOMIB
     Indication: PLASMA CELL MYELOMA
     Dosage: UNK
     Route: 065
  7. MEGESTROL ACETATE. [Concomitant]
     Active Substance: MEGESTROL ACETATE
     Indication: PROPHYLAXIS
     Dosage: 160-400 MILLIGRAM DAILY
  8. CARFILZOMIB [Suspect]
     Active Substance: CARFILZOMIB
     Dosage: 20 MILLIGRAM/SQ. METER, DAYS 1-2 OF CYCLE 1 AT ALL DOSE LEVELS
     Route: 065
  9. DEXAMETHASONE. [Suspect]
     Active Substance: DEXAMETHASONE
     Dosage: 10 MILLIGRAM, (POST CYCLE 5: ON DAYS 1, 2, 8, 9, 15, 16, 22 AND 23
     Route: 065

REACTIONS (33)
  - Cytopenia [Unknown]
  - Deep vein thrombosis [Unknown]
  - Upper gastrointestinal haemorrhage [Unknown]
  - Off label use [Unknown]
  - Psychotic disorder [Unknown]
  - Weight decreased [Unknown]
  - Lymphopenia [Unknown]
  - Musculoskeletal disorder [Unknown]
  - Fatigue [Unknown]
  - Pancreatic enzymes increased [Unknown]
  - Infection [Unknown]
  - Nausea [Unknown]
  - Therapy non-responder [Unknown]
  - Oedema [Unknown]
  - Vomiting [Unknown]
  - Pulmonary embolism [Unknown]
  - Anaemia [Unknown]
  - Hepatic enzyme increased [Unknown]
  - Pain [Unknown]
  - Hyponatraemia [Unknown]
  - Confusional state [Unknown]
  - Upper respiratory tract infection [Unknown]
  - Decreased appetite [Unknown]
  - Plasma cell myeloma [Unknown]
  - Eye disorder [Unknown]
  - Diarrhoea [Unknown]
  - Syncope [Unknown]
  - Osteomyelitis [Unknown]
  - Neutropenia [Unknown]
  - Thrombocytopenia [Unknown]
  - Pneumonia [Unknown]
  - Urinary tract infection [Unknown]
  - Dyspnoea [Unknown]
